FAERS Safety Report 25989460 (Version 1)
Quarter: 2025Q4

REPORT INFORMATION
  Report Type: Spontaneous
  Country: UA (occurrence: UA)
  Receive Date: 20251103
  Receipt Date: 20251103
  Transmission Date: 20260117
  Serious: Yes (Hospitalization, Other)
  Sender: SANOFI AVENTIS
  Company Number: UA-SA-2025SA318560

PATIENT
  Sex: Male

DRUGS (11)
  1. CLOPIDOGREL BISULFATE [Suspect]
     Active Substance: CLOPIDOGREL BISULFATE
     Indication: Acute myocardial infarction
     Dosage: UNK
     Dates: start: 2013
  2. LERCANIDIPINE HYDROCHLORIDE [Suspect]
     Active Substance: LERCANIDIPINE HYDROCHLORIDE
     Indication: Acute myocardial infarction
     Dosage: UNK
     Dates: start: 2013
  3. LERCANIDIPINE HYDROCHLORIDE [Suspect]
     Active Substance: LERCANIDIPINE HYDROCHLORIDE
     Indication: Pulmonary embolism
     Dosage: 10 MG
     Dates: start: 202308
  4. LERCANIDIPINE HYDROCHLORIDE [Suspect]
     Active Substance: LERCANIDIPINE HYDROCHLORIDE
     Indication: Pulmonary infarction
  5. RAMIPRIL [Suspect]
     Active Substance: RAMIPRIL
     Indication: Acute myocardial infarction
     Dosage: UNK
     Dates: start: 2013
  6. ATORVASTATIN [Suspect]
     Active Substance: ATORVASTATIN
     Indication: Acute myocardial infarction
     Dosage: UNK
     Dates: start: 2013
  7. BISOPROLOL FUMARATE [Suspect]
     Active Substance: BISOPROLOL FUMARATE
     Dosage: UNK
  8. LISINOPRIL [Suspect]
     Active Substance: LISINOPRIL
     Dosage: UNK
  9. AMLODIPINE [Suspect]
     Active Substance: AMLODIPINE BESYLATE
     Dosage: UNK
  10. NEBIVOLOL [Suspect]
     Active Substance: NEBIVOLOL
     Indication: Acute myocardial infarction
     Dosage: UNK
     Dates: start: 2013
  11. CARDIOMAGNYL [Suspect]
     Active Substance: ASPIRIN\MAGNESIUM HYDROXIDE
     Dosage: UNK

REACTIONS (18)
  - Pulmonary embolism [Recovering/Resolving]
  - Asthenia [Recovering/Resolving]
  - Dyspnoea exertional [Recovering/Resolving]
  - Abdominal pain upper [Recovering/Resolving]
  - Peripheral swelling [Recovering/Resolving]
  - Haemoptysis [Recovering/Resolving]
  - Dyspnoea [Recovering/Resolving]
  - Pallor [Recovering/Resolving]
  - Cyanosis [Recovering/Resolving]
  - Skin swelling [Recovering/Resolving]
  - Erythema of eyelid [Recovering/Resolving]
  - Oedema peripheral [Recovering/Resolving]
  - Pulmonary congestion [Recovering/Resolving]
  - Lung infiltration [Recovering/Resolving]
  - Treatment noncompliance [Recovering/Resolving]
  - Pneumonia [Recovering/Resolving]
  - Tongue coated [Recovering/Resolving]
  - Pulmonary infarction [Recovering/Resolving]
